FAERS Safety Report 8712614 (Version 2)
Quarter: 2013Q3

REPORT INFORMATION
  Report Type: Spontaneous
  Country: BR (occurrence: BR)
  Receive Date: 20120808
  Receipt Date: 20130808
  Transmission Date: 20140515
  Serious: Yes (Hospitalization, Other)
  Sender: FDA-Public Use
  Company Number: BR-SANOFI-AVENTIS-2012SA054516

PATIENT
  Age: 78 Year
  Sex: Female
  Weight: 67 kg

DRUGS (11)
  1. LANTUS [Suspect]
     Indication: TYPE 2 DIABETES MELLITUS
     Route: 058
  2. AUTOPEN 24 [Suspect]
     Indication: DEVICE THERAPY
  3. CARVEDILOL [Concomitant]
     Indication: CARDIAC DISORDER
     Dosage: STRENGTH: 6.25 MG/TABLET
  4. BENERVA [Concomitant]
     Indication: VITAMIN SUPPLEMENTATION
     Dosage: STRENGTH: 300MG/TABLET
  5. DAFLON [Concomitant]
     Indication: BLOOD DISORDER
     Dosage: 500 MG/TABLET
  6. HUMALOG [Concomitant]
     Indication: TYPE 2 DIABETES MELLITUS
     Dosage: ACC TO GLYCEMIC LEVEL
  7. HUMALOG [Concomitant]
     Indication: TYPE 2 DIABETES MELLITUS
  8. LEXOTAN [Concomitant]
     Indication: SLEEP DISORDER
     Dosage: STRENGTH: 3 MG/TABLET
  9. LOSARTAN [Concomitant]
     Indication: HYPERTENSION
     Dosage: 500 MG/TABLET
  10. SIMVASTATIN [Concomitant]
     Indication: BLOOD CHOLESTEROL
  11. SOMALGIN [Concomitant]
     Indication: THROMBOSIS
     Dosage: STRENGTH: 100 MG/TABLET

REACTIONS (11)
  - Thrombosis [Recovered/Resolved]
  - Chest discomfort [Recovered/Resolved]
  - Feeling abnormal [Recovered/Resolved]
  - Eye haemorrhage [Recovered/Resolved]
  - Haemorrhage [Recovered/Resolved]
  - Ocular hyperaemia [Recovered/Resolved]
  - Hyperglycaemia [Recovered/Resolved]
  - Loss of consciousness [Unknown]
  - Hypoglycaemia [Recovered/Resolved]
  - Hyperhidrosis [Recovered/Resolved]
  - Confusional state [Recovered/Resolved]
